APPROVED DRUG PRODUCT: OLANZAPINE
Active Ingredient: OLANZAPINE
Strength: 7.5MG
Dosage Form/Route: TABLET;ORAL
Application: A206924 | Product #003
Applicant: HISUN PHARMACEUTICAL (HANGZHOU) CO LTD
Approved: Dec 31, 2020 | RLD: No | RS: No | Type: DISCN